FAERS Safety Report 6816884-3 (Version None)
Quarter: 2010Q2

REPORT INFORMATION
  Report Type: 
  Country: None (occurrence: None)
  Receive Date: 20100630
  Receipt Date: 20100621
  Transmission Date: 20101027
  Serious: No
  Sender: FDA-Public Use
  Company Number: 2010JP001479

PATIENT
  Age: 84 Year
  Sex: Male

DRUGS (19)
  1. PROGRAF [Suspect]
     Indication: RHEUMATOID ARTHRITIS
     Dosage: 1 MG, UID/QD, ORAL
     Route: 048
     Dates: start: 20091019, end: 20100228
  2. PROGRAF [Suspect]
     Indication: RHEUMATOID ARTHRITIS
     Dosage: 1 MG, UID/QD, ORAL
     Route: 048
     Dates: start: 20100405
  3. DIOVAN [Suspect]
     Indication: HYPERTENSION
     Dosage: 40 MG, UID/QD, ORAL; ORAL
     Route: 048
     Dates: end: 20100426
  4. NORVASC [Suspect]
     Indication: HYPERTENSION
     Dosage: 5 MG, UID/QD, ORAL; 2.5 MG /D, ORAL
     Route: 048
     Dates: end: 20100425
  5. NORVASC [Suspect]
     Indication: HYPERTENSION
     Dosage: 5 MG, UID/QD, ORAL; 2.5 MG /D, ORAL
     Route: 048
     Dates: start: 20100426
  6. TRICHLORMETHIAZIDE [Suspect]
     Indication: HYPERTENSION
     Dosage: ORAL; 0.5 MG, UID/QD, ORAL
     Route: 048
     Dates: end: 20100425
  7. TRICHLORMETHIAZIDE [Suspect]
     Indication: HYPERTENSION
     Dosage: ORAL; 0.5 MG, UID/QD, ORAL
     Route: 048
     Dates: start: 20100426
  8. METHOTREXATE [Concomitant]
  9. URSO 250 [Concomitant]
  10. VERAPAMIL HYDROCHLORIDE [Concomitant]
  11. EURODIN (ESTAZOLAM) [Concomitant]
  12. MUCOSTA (REBAMIPIDE) [Concomitant]
  13. PREDNISOLONE [Concomitant]
  14. LANSOPRAZOLE [Concomitant]
  15. RHEUMATREX [Concomitant]
  16. FOLIC ACID [Concomitant]
  17. ASPIRIN [Concomitant]
  18. LOXONON (LOXOPROFEN) [Concomitant]
  19. OPALMON (LIMAPROST) [Concomitant]

REACTIONS (3)
  - CAROTID ARTERIOSCLEROSIS [None]
  - GAIT DISTURBANCE [None]
  - VESTIBULAR DISORDER [None]
